FAERS Safety Report 18793556 (Version 2)
Quarter: 2021Q1

REPORT INFORMATION
  Report Type: Spontaneous
  Country: FR (occurrence: FR)
  Receive Date: 20210127
  Receipt Date: 20210226
  Transmission Date: 20210419
  Serious: Yes (Hospitalization, Other)
  Sender: FDA-Public Use
  Company Number: FR-PFIZER INC-2021043221

PATIENT
  Age: 37 Year
  Sex: Female

DRUGS (10)
  1. BEVACIZUMAB. [Suspect]
     Active Substance: BEVACIZUMAB
     Indication: NON-SMALL CELL LUNG CANCER
     Dosage: 675 MG (FREQ:21 D;MOST RECENT DOSE: 02/DEC/2020, 9 CYCLESEVERY 1 CYCLE(S) DAY1 OF CYCLE OF 21 DAYS)
     Route: 042
     Dates: start: 20200608
  2. DOLIPRANE CODEINE [Concomitant]
     Active Substance: ACETAMINOPHEN\CODEINE PHOSPHATE
     Indication: HEADACHE
     Dosage: 1 G, 1X/DAY
     Route: 048
     Dates: start: 2020
  3. CISPLATIN. [Concomitant]
     Active Substance: CISPLATIN
     Dosage: 105 MG (FREQ:21 D;18?AUG?2020, 4 CYCLES)
     Route: 042
     Dates: start: 2020, end: 20200818
  4. PEMETREXED. [Concomitant]
     Active Substance: PEMETREXED
     Indication: NON-SMALL CELL LUNG CANCER
     Dosage: 720 MG (FREQ:21 D;18?AUG?2020)
     Route: 042
     Dates: start: 20200608, end: 2020
  5. ATEZOLIZUMAB. [Suspect]
     Active Substance: ATEZOLIZUMAB
     Indication: NON-SMALL CELL LUNG CANCER
     Dosage: 1200 MG (MOST RECENT DOSE: 20/OCT/2020, 7 CYCLESEVERY 1 CYCLES DAY1 OF CYCLE OF 21 DAYS)
     Route: 042
     Dates: start: 20200608
  6. EMEND [Concomitant]
     Active Substance: APREPITANT
     Indication: VOMITING
     Dosage: UNK
     Dates: start: 20200607, end: 20201020
  7. PEMETREXED. [Concomitant]
     Active Substance: PEMETREXED
     Dosage: 700 MG (FREQ:21 D;18?AUG?2020)
     Route: 042
     Dates: start: 2020, end: 20201020
  8. CISPLATIN. [Concomitant]
     Active Substance: CISPLATIN
     Indication: NON-SMALL CELL LUNG CANCER
     Dosage: 108 MG (FREQ:21 D;18?AUG?2020, 4 CYCLES)
     Route: 042
     Dates: start: 20200608, end: 2020
  9. PRIMPERAN [Concomitant]
     Active Substance: METOCLOPRAMIDE HYDROCHLORIDE
     Indication: VOMITING
     Dosage: UNK
     Dates: start: 20200607, end: 20201030
  10. ZOPHREN [ONDANSETRON] [Concomitant]
     Active Substance: ONDANSETRON
     Indication: VOMITING
     Dosage: UNK
     Dates: start: 20200607, end: 20201030

REACTIONS (6)
  - Aspartate aminotransferase increased [Recovering/Resolving]
  - Alanine aminotransferase increased [Recovering/Resolving]
  - Metastases to meninges [Not Recovered/Not Resolved]
  - General physical health deterioration [Not Recovered/Not Resolved]
  - Headache [Not Recovered/Not Resolved]
  - Hyperthyroidism [Recovering/Resolving]

NARRATIVE: CASE EVENT DATE: 20201201
